FAERS Safety Report 9489357 (Version 2)
Quarter: 2013Q3

REPORT INFORMATION
  Report Type: Spontaneous
  Country: JP (occurrence: JP)
  Receive Date: 20130829
  Receipt Date: 20130829
  Transmission Date: 20140515
  Serious: Yes (Hospitalization)
  Sender: FDA-Public Use
  Company Number: PHHY2013JP085885

PATIENT
  Age: 41 Year
  Sex: Male

DRUGS (12)
  1. CARBAMAZEPINE [Suspect]
     Indication: EPILEPSY
     Dosage: 1000 MG, DAILY
     Route: 048
  2. PREDNISOLONE [Interacting]
     Dosage: 20 MG, DAILY
     Route: 048
  3. PREDNISOLONE [Interacting]
     Dosage: 30 MG, DAILY
     Route: 048
  4. PREDNISOLONE [Interacting]
     Dosage: 50 MG, DAILY
     Route: 048
  5. PREDNISOLONE [Interacting]
     Dosage: 120 MG, DAILY
     Route: 048
  6. PHENYTOIN [Interacting]
     Dosage: 275 MG, DAILY
  7. MIZORIBINE [Interacting]
     Indication: PEMPHIGOID
     Dosage: 100 MG, DAILY
  8. CANDESARTAN CILEXETIL [Concomitant]
     Indication: HYPERTENSION
     Dosage: 4 MG, UNK
  9. METHYLPREDNISOLONE [Concomitant]
     Dosage: 500 MG DAILY FOR 03 DAYS
  10. METHYLPREDNISOLONE [Concomitant]
     Dosage: 1000 MG DAILY FOR 03 DAYS
  11. METHYLPREDNISOLONE [Concomitant]
     Dosage: 2000 MG DAILY FOR 03 DAYS
  12. IVIGLOB-EX [Concomitant]
     Dosage: 25 G, DAILY FOR 05 DAYS

REACTIONS (5)
  - Pemphigoid [Unknown]
  - Erythema [Unknown]
  - Blister [Unknown]
  - Drug effect decreased [Unknown]
  - Drug interaction [Unknown]
